FAERS Safety Report 8887904 (Version 1)
Quarter: 2012Q4

REPORT INFORMATION
  Report Type: Spontaneous
  Country: US (occurrence: None)
  Receive Date: 20121101
  Receipt Date: 20121101
  Transmission Date: 20130627
  Serious: No
  Sender: FDA-Public Use
  Company Number: None

PATIENT
  Age: 62 Year
  Sex: Male
  Weight: 106.4 kg

DRUGS (2)
  1. METOCLOPRAMIDE [Suspect]
     Indication: GERD
     Dosage: MG PO
     Route: 048
     Dates: start: 20001101, end: 20121016
  2. METOCLOPRAMIDE [Suspect]
     Indication: GASTROPARESIS
     Dosage: MG PO
     Route: 048
     Dates: start: 20001101, end: 20121016

REACTIONS (3)
  - Dizziness [None]
  - Fall [None]
  - Parkinsonism [None]
